FAERS Safety Report 9835118 (Version 1)
Quarter: 2014Q1

REPORT INFORMATION
  Report Type: Spontaneous
  Country: US (occurrence: US)
  Receive Date: 20140122
  Receipt Date: 20140122
  Transmission Date: 20141002
  Serious: No
  Sender: FDA-Public Use
  Company Number: US-BRISTOL-MYERS SQUIBB COMPANY-19797992

PATIENT
  Age: 87 Year
  Sex: Female
  Weight: 68.93 kg

DRUGS (5)
  1. ELIQUIS [Suspect]
     Indication: ATRIAL FIBRILLATION
  2. XARELTO [Suspect]
  3. AMLODIPINE [Concomitant]
  4. METOPROLOL [Concomitant]
  5. LASIX [Concomitant]

REACTIONS (1)
  - Pruritus [Unknown]
